FAERS Safety Report 7736953-3 (Version None)
Quarter: 2011Q3

REPORT INFORMATION
  Report Type: 
  Country: None (occurrence: None)
  Receive Date: 20110902
  Receipt Date: 20110822
  Transmission Date: 20111222
  Serious: Yes (Hospitalization)
  Sender: FDA-Public Use
  Company Number: 2011MA012365

PATIENT
  Age: 78 Year
  Sex: Male

DRUGS (1)
  1. CLINDAMYCIN PHOSPHATE [Suspect]
     Indication: DENTAL IMPLANTATION
     Dosage: 150 MG PO
     Route: 048

REACTIONS (8)
  - RESPIRATORY DISTRESS [None]
  - SYNCOPE [None]
  - PNEUMONIA ASPIRATION [None]
  - CAPSULE PHYSICAL ISSUE [None]
  - OROPHARYNGEAL PLAQUE [None]
  - FOREIGN BODY ASPIRATION [None]
  - TRACHEITIS [None]
  - LARYNGEAL HAEMORRHAGE [None]
